FAERS Safety Report 9860082 (Version 2)
Quarter: 2014Q1

REPORT INFORMATION
  Report Type: Spontaneous
  Country: US (occurrence: US)
  Receive Date: 20140131
  Receipt Date: 20140305
  Transmission Date: 20141002
  Serious: Yes (Other)
  Sender: FDA-Public Use
  Company Number: US-ROCHE-1342941

PATIENT
  Age: 60 Year
  Sex: Male

DRUGS (5)
  1. ZELBORAF [Suspect]
     Indication: METASTATIC MALIGNANT MELANOMA
     Route: 048
     Dates: start: 20130531
  2. IBUPROFEN [Concomitant]
     Indication: PAIN
     Route: 048
  3. LISINOPRIL [Concomitant]
     Indication: HYPERTENSION
     Dosage: FREQUENCY : EVERYDAY.
     Route: 048
  4. OXYCODONE [Concomitant]
     Indication: PAIN
     Route: 048
  5. NEXIUM [Concomitant]
     Indication: GASTROOESOPHAGEAL REFLUX DISEASE
     Dosage: FREQUENCY : EVERYDAY.
     Route: 048

REACTIONS (2)
  - Adenocarcinoma pancreas [Recovering/Resolving]
  - Bile duct obstruction [Recovered/Resolved]
